FAERS Safety Report 10472982 (Version 1)
Quarter: 2014Q3

REPORT INFORMATION
  Report Type: Spontaneous
  Country: US (occurrence: US)
  Receive Date: 20140924
  Receipt Date: 20140924
  Transmission Date: 20150326
  Serious: No
  Sender: FDA-Public Use
  Company Number: US-GE HEALTHCARE MEDICAL DIAGNOSTICS-OPTN-PR-1406S-0015

PATIENT
  Age: 67 Year
  Sex: Male

DRUGS (3)
  1. XOLAIR [Concomitant]
     Active Substance: OMALIZUMAB
  2. OPTISON [Suspect]
     Active Substance: ALBUMIN (HUMAN)
     Indication: DIAGNOSTIC PROCEDURE
  3. OPTISON [Suspect]
     Active Substance: ALBUMIN (HUMAN)
     Indication: CORONARY ARTERY DISEASE
     Route: 042
     Dates: start: 20140623, end: 20140623

REACTIONS (3)
  - Nausea [Recovering/Resolving]
  - Diarrhoea [Recovering/Resolving]
  - Eructation [Recovering/Resolving]

NARRATIVE: CASE EVENT DATE: 20140623
